FAERS Safety Report 6295247-6 (Version None)
Quarter: 2009Q3

REPORT INFORMATION
  Report Type: 
  Country: None (occurrence: None)
  Receive Date: 20090803
  Receipt Date: 20090724
  Transmission Date: 20100115
  Serious: Yes (Hospitalization)
  Sender: FDA-Public Use
  Company Number: KR-AVENTIS-200917480GDDC

PATIENT
  Age: 75 Year
  Sex: Female
  Weight: 50.5 kg

DRUGS (2)
  1. LANTUS [Suspect]
     Indication: DIABETES MELLITUS
     Route: 058
     Dates: start: 20090522
  2. APIDRA [Suspect]
     Indication: DIABETES MELLITUS
     Dosage: DOSE: 8-8-6
     Route: 058
     Dates: start: 20090522

REACTIONS (3)
  - COLD SWEAT [None]
  - DYSPNOEA [None]
  - GENERALISED OEDEMA [None]
